FAERS Safety Report 10982230 (Version 1)
Quarter: 2015Q2

REPORT INFORMATION
  Report Type: Spontaneous
  Country: US (occurrence: None)
  Receive Date: 20150401
  Receipt Date: 20150401
  Transmission Date: 20150821
  Serious: No
  Sender: FDA-Public Use
  Company Number: None

PATIENT
  Age: 45 Year
  Sex: Female

DRUGS (3)
  1. PROTONIX [Concomitant]
     Active Substance: PANTOPRAZOLE SODIUM
  2. MVI [Concomitant]
     Active Substance: VITAMINS
  3. TECFIDERA [Suspect]
     Active Substance: DIMETHYL FUMARATE
     Indication: MULTIPLE SCLEROSIS
     Dosage: I TAB
     Route: 048
     Dates: start: 20150321, end: 20150321

REACTIONS (2)
  - Burning sensation [None]
  - Feeling hot [None]

NARRATIVE: CASE EVENT DATE: 20150321
